FAERS Safety Report 19942119 (Version 2)
Quarter: 2021Q4

REPORT INFORMATION
  Report Type: Spontaneous
  Country: JP (occurrence: None)
  Receive Date: 20211011
  Receipt Date: 20211125
  Transmission Date: 20220304
  Serious: Yes (Congenital Anomaly)
  Sender: FDA-Public Use
  Company Number: 2021A767103

PATIENT
  Age: 0 Year
  Sex: Female

DRUGS (3)
  1. ROSUVASTATIN [Suspect]
     Active Substance: ROSUVASTATIN
     Dosage: 1 2.5 MG/ DAY
     Route: 064
  2. TOFOGLIFLOZIN [Suspect]
     Active Substance: TOFOGLIFLOZIN
     Dosage: -1
     Route: 064
  3. VOGLIBOSE [Suspect]
     Active Substance: VOGLIBOSE
     Dosage: -1
     Route: 064

REACTIONS (2)
  - Cataract congenital [Not Recovered/Not Resolved]
  - Foetal renal impairment [Unknown]
